FAERS Safety Report 10515911 (Version 10)
Quarter: 2015Q3

REPORT INFORMATION
  Report Type: Spontaneous
  Country: US (occurrence: US)
  Receive Date: 20141014
  Receipt Date: 20150820
  Transmission Date: 20151125
  Serious: Yes (Hospitalization)
  Sender: FDA-Public Use
  Company Number: US-PFIZER INC-2014279001

PATIENT
  Age: 81 Year
  Sex: Female
  Weight: 59 kg

DRUGS (12)
  1. BISOPROLOL [Concomitant]
     Active Substance: BISOPROLOL
     Dosage: 5 MG, UNK
  2. SUTENT [Suspect]
     Active Substance: SUNITINIB MALATE
     Dosage: 50 MG, UNK
     Route: 048
  3. SUTENT [Suspect]
     Active Substance: SUNITINIB MALATE
     Dosage: 37.5 MG, CYCLIC (12.5MG 3 TABS DAILY X 28 DAYS OF 42 DAYS)
  4. SUTENT [Suspect]
     Active Substance: SUNITINIB MALATE
     Dosage: 37.5 MG, 3X/DAY (4 WEEKS ON TWO WEEKS OFF)
     Route: 048
  5. SUTENT [Suspect]
     Active Substance: SUNITINIB MALATE
     Dosage: 37.5 MG, DAILY
     Dates: start: 201209, end: 201503
  6. PLAVIX [Concomitant]
     Active Substance: CLOPIDOGREL BISULFATE
     Dosage: 75 MG, UNK
  7. BIOTIN [Concomitant]
     Active Substance: BIOTIN
     Dosage: UNK
  8. SYNTHROID [Concomitant]
     Active Substance: LEVOTHYROXINE SODIUM
     Indication: THYROID CANCER
     Dosage: 100 MG, UNK
  9. SUTENT [Suspect]
     Active Substance: SUNITINIB MALATE
     Indication: GASTROINTESTINAL STROMAL TUMOUR
     Dosage: 12.5 MG, 3X/DAY (4 WEEKS ON TWO WEEKS OFF)
     Route: 048
     Dates: start: 201209
  10. BIOTIN [Concomitant]
     Active Substance: BIOTIN
     Dosage: UNK
  11. VITAMIN B12 [Concomitant]
     Active Substance: CYANOCOBALAMIN
     Dosage: UNK
  12. CALCIUM [Concomitant]
     Active Substance: CALCIUM
     Dosage: UNK

REACTIONS (17)
  - Hypoaesthesia [Unknown]
  - Asthenia [Unknown]
  - Mouth ulceration [Unknown]
  - Conjunctivitis [Recovered/Resolved]
  - Dry mouth [Unknown]
  - Dry skin [Unknown]
  - Influenza like illness [Unknown]
  - Diarrhoea [Unknown]
  - Liver function test abnormal [Recovered/Resolved]
  - Abdominal pain upper [Unknown]
  - Visual impairment [Recovered/Resolved]
  - Alopecia [Unknown]
  - Protein total decreased [Unknown]
  - Hair colour changes [Unknown]
  - Overdose [Recovered/Resolved]
  - Skin fissures [Unknown]
  - Heart rate increased [Unknown]

NARRATIVE: CASE EVENT DATE: 2013
